FAERS Safety Report 8770889 (Version 1)
Quarter: 2012Q4

REPORT INFORMATION
  Report Type: 
  Country: US (occurrence: US)
  Receive Date: 20120906
  Receipt Date: 20120906
  Transmission Date: 20130627
  Serious: Yes (Hospitalization)
  Sender: FDA-Public Use
  Company Number: US-BAYER-2012-091206

PATIENT
  Age: 27 Year
  Sex: Female

DRUGS (6)
  1. YASMIN [Suspect]
  2. PATANOL [Concomitant]
     Dosage: UNK UNK, PRN
  3. LEXAPRO [Concomitant]
     Dosage: 5 mg, QD
     Route: 048
     Dates: start: 20050123, end: 20050924
  4. NASAREL [Concomitant]
     Dosage: 1 puff, BID
     Route: 045
     Dates: start: 20050912
  5. ADVAIR [Concomitant]
     Dosage: 1 puff, BID
     Route: 045
     Dates: start: 20050912, end: 20050924
  6. EPIPEN [Concomitant]
     Dosage: 0.3 mg, UNK
     Dates: start: 20050912

REACTIONS (2)
  - Thrombophlebitis superficial [Recovering/Resolving]
  - Deep vein thrombosis [Recovered/Resolved]
